FAERS Safety Report 22030222 (Version 1)
Quarter: 2023Q1

REPORT INFORMATION
  Report Type: Spontaneous
  Country: CA (occurrence: CA)
  Receive Date: 20230223
  Receipt Date: 20230223
  Transmission Date: 20230417
  Serious: Yes (Hospitalization)
  Sender: FDA-Public Use
  Company Number: CA-009507513-2302CAN007188

PATIENT
  Age: 70 Year
  Sex: Female

DRUGS (14)
  1. INVANZ [Suspect]
     Active Substance: ERTAPENEM SODIUM
     Dosage: 5.0 MILLIGRAM
     Route: 042
  2. AMIODARONE [Suspect]
     Active Substance: AMIODARONE
  3. PIPERACILLIN AND TAZOBACTAM [Suspect]
     Active Substance: PIPERACILLIN SODIUM\TAZOBACTAM SODIUM
  4. EZETIMIBE [Concomitant]
     Active Substance: EZETIMIBE
  5. FOLIC ACID [Concomitant]
     Active Substance: FOLIC ACID
  6. HEPARIN SODIUM [Concomitant]
     Active Substance: HEPARIN SODIUM
  7. LANTUS [Concomitant]
     Active Substance: INSULIN GLARGINE
  8. MELATONIN [Concomitant]
     Active Substance: MELATONIN
  9. METOPROLOL [Concomitant]
     Active Substance: METOPROLOL
  10. PANTOPRAZOLE [Concomitant]
     Active Substance: PANTOPRAZOLE
  11. PERINDOPRIL [Concomitant]
     Active Substance: PERINDOPRIL
  12. PRAVASTATIN SODIUM [Concomitant]
     Active Substance: PRAVASTATIN SODIUM
  13. RISEDRONATE SODIUM [Concomitant]
     Active Substance: RISEDRONATE SODIUM
  14. TYLENOL [Concomitant]
     Active Substance: ACETAMINOPHEN

REACTIONS (3)
  - Biliary obstruction [Recovering/Resolving]
  - Cholestasis [Recovering/Resolving]
  - Drug-induced liver injury [Recovering/Resolving]
